FAERS Safety Report 6305968-4 (Version None)
Quarter: 2009Q3

REPORT INFORMATION
  Report Type: 
  Country: None (occurrence: None)
  Receive Date: 20090812
  Receipt Date: 20090807
  Transmission Date: 20100115
  Serious: Yes (Other)
  Sender: FDA-Public Use
  Company Number: JP-ASTRAZENECA-2009SE06908

PATIENT
  Age: 78 Year
  Sex: Female

DRUGS (1)
  1. TENORMIN [Suspect]
     Route: 048
     Dates: start: 20090729

REACTIONS (1)
  - SOMNOLENCE [None]
